FAERS Safety Report 7014992-8 (Version None)
Quarter: 2010Q3

REPORT INFORMATION
  Report Type: 
  Country: None (occurrence: None)
  Receive Date: 20100927
  Receipt Date: 20100111
  Transmission Date: 20110219
  Serious: No
  Sender: FDA-Public Use
  Company Number: CA-ASTRAZENECA-2010SE01179

PATIENT
  Sex: Female

DRUGS (2)
  1. ARIMIDEX [Suspect]
     Indication: BREAST CANCER
     Route: 048
     Dates: start: 20080101
  2. LIPITOR [Concomitant]

REACTIONS (9)
  - ALOPECIA [None]
  - ARTHRALGIA [None]
  - FATIGUE [None]
  - GINGIVAL DISORDER [None]
  - HOT FLUSH [None]
  - INSOMNIA [None]
  - SLEEP DISORDER [None]
  - TOOTH EROSION [None]
  - TRIGGER FINGER [None]
